FAERS Safety Report 21739882 (Version 6)
Quarter: 2023Q1

REPORT INFORMATION
  Report Type: Report from Study
  Country: CO (occurrence: CO)
  Receive Date: 20221216
  Receipt Date: 20230228
  Transmission Date: 20230417
  Serious: Yes (Hospitalization)
  Sender: FDA-Public Use
  Company Number: CO-002147023-NVSC2022CO290056

PATIENT
  Sex: Female

DRUGS (3)
  1. KISQALI [Suspect]
     Active Substance: RIBOCICLIB
     Indication: Breast cancer metastatic
     Dosage: UNK, QD (ONCE DAILY, BY MOUTH)
     Route: 048
  2. FEMARA [Suspect]
     Active Substance: LETROZOLE
     Indication: Breast cancer metastatic
     Dosage: UNK, QD (ONCE DAILY, BY MOUTH)
     Route: 048
  3. MORPHINE [Concomitant]
     Active Substance: MORPHINE
     Indication: Product used for unknown indication
     Dosage: UNK
     Route: 065

REACTIONS (10)
  - Leukaemia [Unknown]
  - Lung disorder [Unknown]
  - Pain [Unknown]
  - Feeding disorder [Unknown]
  - Affective disorder [Unknown]
  - Insomnia [Unknown]
  - Memory impairment [Unknown]
  - Tremor [Unknown]
  - Weight decreased [Unknown]
  - Malaise [Unknown]
